FAERS Safety Report 8532022-3 (Version None)
Quarter: 2012Q3

REPORT INFORMATION
  Report Type: 
  Country: None (occurrence: None)
  Receive Date: 20120723
  Receipt Date: 20120712
  Transmission Date: 20120928
  Serious: Yes (Hospitalization)
  Sender: FDA-Public Use
  Company Number: NL-FRI-1000037259

PATIENT
  Sex: Female
  Weight: 69 kg

DRUGS (3)
  1. LEXAPRO [Suspect]
     Indication: DEPRESSED MOOD
     Dosage: 18 MG
     Route: 048
     Dates: start: 20100526
  2. FEXOFENADINE [Concomitant]
     Dosage: 270 MG
     Route: 048
     Dates: start: 20081209
  3. ETHINYLESTRADIOL/ LEVONORES [Concomitant]
     Route: 048
     Dates: start: 20101215, end: 20120507

REACTIONS (1)
  - JAW FRACTURE [None]
